FAERS Safety Report 4413241-4 (Version None)
Quarter: 2004Q3

REPORT INFORMATION
  Report Type: 
  Country: None (occurrence: None)
  Receive Date: 20040728
  Receipt Date: 20040707
  Transmission Date: 20050211
  Serious: Yes (Hospitalization)
  Sender: FDA-Public Use
  Company Number: USA040567030

PATIENT
  Age: 51 Year
  Sex: Female

DRUGS (1)
  1. FORTEO [Suspect]
     Dosage: 20 UG

REACTIONS (3)
  - CUSHING'S SYNDROME [None]
  - LIVER OPERATION [None]
  - PHARMACEUTICAL PRODUCT COMPLAINT [None]
